FAERS Safety Report 21019975 (Version 1)
Quarter: 2022Q2

REPORT INFORMATION
  Report Type: Spontaneous
  Country: SE (occurrence: SE)
  Receive Date: 20220628
  Receipt Date: 20220628
  Transmission Date: 20220721
  Serious: Yes (Other)
  Sender: FDA-Public Use
  Company Number: None

PATIENT
  Age: 77 Year
  Sex: Male
  Weight: 60 kg

DRUGS (13)
  1. IMOVANE [Suspect]
     Active Substance: ZOPICLONE
     Indication: Osteoporosis
     Dosage: 4 MG/5 ML 6,25ML=5MG
     Route: 042
     Dates: start: 20220513, end: 20220513
  2. Bisoprolol Sandoz 10 mg Filmdragerad tablett [Concomitant]
     Indication: Product used for unknown indication
     Dosage: 10 MG FILM-COATED TABLET
     Route: 048
  3. Beviplex Comp  film-coated tablet [Concomitant]
     Indication: Product used for unknown indication
     Route: 048
     Dates: start: 20211203
  4. Omecat 20 mg Enterokapsel, h?rd [Concomitant]
     Indication: Product used for unknown indication
     Dosage: 20 MG ENTERO CAPSULE, HARD
     Route: 048
     Dates: start: 20211203
  5. IMOVANE [Concomitant]
     Active Substance: ZOPICLONE
     Indication: Product used for unknown indication
     Dosage: 5 MG TABLET
     Dates: start: 20200723
  6. ELIQUIS [Concomitant]
     Active Substance: APIXABAN
     Indication: Product used for unknown indication
     Dosage: 5 MG 2/DAG?5 MG FILM-COATED TABLET
     Route: 048
  7. Amitriptylin Abcur 10 mg Film coated tablet [Concomitant]
     Indication: Product used for unknown indication
     Route: 048
     Dates: start: 20210611
  8. KIOVIG [Concomitant]
     Active Substance: HUMAN IMMUNOGLOBULIN G
     Indication: Product used for unknown indication
     Dates: start: 202112
  9. Acetylcystein Alternova 200 mg Effervescent tablet [Concomitant]
     Indication: Product used for unknown indication
     Dosage: 200 MG 3/DAY?200 MG EFFERVESCENT TABLET
  10. Impugan 40 mg Tablet [Concomitant]
     Indication: Product used for unknown indication
     Dosage: 40 MG IF NECESSARY. ABOUT 2 PCS A WEEK.?DOSE 1
     Route: 048
  11. Kalcipos-D forte 500 mg/800 IE film-coated tablet [Concomitant]
     Indication: Product used for unknown indication
     Route: 048
  12. RAMIPRIL [Concomitant]
     Active Substance: RAMIPRIL
     Indication: Product used for unknown indication
     Dates: end: 20220531
  13. Atorvastatin Teva 20 mg Film coated tablet [Concomitant]
     Indication: Product used for unknown indication
     Route: 048
     Dates: start: 20210521

REACTIONS (1)
  - Renal failure [Recovering/Resolving]

NARRATIVE: CASE EVENT DATE: 20220524
